FAERS Safety Report 9308791 (Version 1)
Quarter: 2013Q2

REPORT INFORMATION
  Report Type: Spontaneous
  Country: US (occurrence: US)
  Receive Date: 20130524
  Receipt Date: 20130524
  Transmission Date: 20140414
  Serious: No
  Sender: FDA-Public Use
  Company Number: US-NOVEN-13US006375

PATIENT
  Age: 60 Year
  Sex: Female

DRUGS (2)
  1. MINIVELLE [Suspect]
     Indication: HORMONE THERAPY
     Dosage: 0.05 MG, 2/WK
     Route: 062
     Dates: start: 20130215, end: 20130227
  2. ANTIHYPERTENSIVES [Concomitant]
     Indication: HYPERTENSION
     Dosage: UNK
     Route: 048

REACTIONS (5)
  - Application site ulcer [Recovering/Resolving]
  - Application site scab [Recovering/Resolving]
  - Application site pain [Recovered/Resolved]
  - Application site irritation [Recovering/Resolving]
  - Application site erythema [Recovered/Resolved]
